FAERS Safety Report 5413691-3 (Version None)
Quarter: 2007Q3

REPORT INFORMATION
  Report Type: 
  Country: None (occurrence: None)
  Receive Date: 20070814
  Receipt Date: 20070808
  Transmission Date: 20080115
  Serious: Yes (Death, Life-Threatening)
  Sender: FDA-Public Use
  Company Number: A0666323A

PATIENT
  Age: 50 Year
  Sex: Male
  Weight: 103.2 kg

DRUGS (4)
  1. COREG [Suspect]
     Indication: DRUG USE FOR UNKNOWN INDICATION
     Dosage: 12.5MG PER DAY
     Route: 048
  2. ACCUPRIL [Concomitant]
     Dosage: 20MG PER DAY
     Route: 048
     Dates: start: 20070611
  3. LASIX [Concomitant]
     Route: 048
     Dates: start: 20070620
  4. IMDUR [Concomitant]
     Route: 048
     Dates: start: 20070620

REACTIONS (3)
  - CEREBROVASCULAR ACCIDENT [None]
  - HAEMORRHAGE [None]
  - TREATMENT NONCOMPLIANCE [None]
